FAERS Safety Report 24771464 (Version 1)
Quarter: 2024Q4

REPORT INFORMATION
  Report Type: Spontaneous
  Country: US (occurrence: None)
  Receive Date: 20241224
  Receipt Date: 20241224
  Transmission Date: 20250115
  Serious: Yes (Hospitalization)
  Sender: Public
  Company Number: None

PATIENT
  Sex: Male

DRUGS (1)
  1. PERTZYE [Suspect]
     Active Substance: PANCRELIPASE AMYLASE\PANCRELIPASE LIPASE\PANCRELIPASE PROTEASE
     Indication: Cystic fibrosis
     Dosage: FREQ: TAKE 4 CAPSULES BY MOUTH PER MEAL (3 MEALS PER DAY) AND TAKE 2 CAPSULES PER SNACK (3 SNACKS PE
     Route: 048

REACTIONS (4)
  - Asthma [None]
  - Insomnia [None]
  - Loss of personal independence in daily activities [None]
  - Antisocial behaviour [None]
